FAERS Safety Report 4569455-6 (Version None)
Quarter: 2005Q1

REPORT INFORMATION
  Report Type: 
  Country: None (occurrence: None)
  Receive Date: 20050201
  Receipt Date: 20050118
  Transmission Date: 20050727
  Serious: Yes (Hospitalization, Other)
  Sender: FDA-Public Use
  Company Number: 207859

PATIENT
  Age: 50 Year
  Sex: Female

DRUGS (2)
  1. AVONEX [Suspect]
     Indication: MULTIPLE SCLEROSIS
     Dosage: 30 UG;QW; IM
     Route: 030
     Dates: start: 20030425
  2. AVONEX [Suspect]
     Indication: MULTIPLE SCLEROSIS
     Dosage: 30 UG; QW; ;IM
     Route: 030
     Dates: start: 20030801, end: 20041101

REACTIONS (7)
  - ANGIOGRAM CEREBRAL ABNORMAL [None]
  - ARTERIOVENOUS FISTULA [None]
  - DEEP VEIN THROMBOSIS [None]
  - GENE MUTATION IDENTIFICATION TEST POSITIVE [None]
  - PULMONARY EMBOLISM [None]
  - SINUS DISORDER [None]
  - TINNITUS [None]
